FAERS Safety Report 16466637 (Version 2)
Quarter: 2019Q3

REPORT INFORMATION
  Report Type: Spontaneous
  Country: DE (occurrence: DE)
  Receive Date: 20190623
  Receipt Date: 20190822
  Transmission Date: 20191004
  Serious: Yes (Other)
  Sender: FDA-Public Use
  Company Number: DE-BIOGEN-2017BI00498996

PATIENT
  Sex: Female

DRUGS (1)
  1. PLEGRIDY [Suspect]
     Active Substance: PEGINTERFERON BETA-1A
     Indication: PATERNAL EXPOSURE TIMING UNSPECIFIED
     Route: 050
     Dates: start: 20160602

REACTIONS (5)
  - Foetal heart rate abnormal [Recovered/Resolved]
  - Meconium in amniotic fluid [Recovered/Resolved]
  - Prolonged labour [Recovered/Resolved]
  - Blood test abnormal [Recovered/Resolved]
  - Paternal exposure before pregnancy [Unknown]

NARRATIVE: CASE EVENT DATE: 201808
